FAERS Safety Report 10576278 (Version 2)
Quarter: 2014Q4

REPORT INFORMATION
  Report Type: Spontaneous
  Country: GR (occurrence: GR)
  Receive Date: 20141111
  Receipt Date: 20141210
  Transmission Date: 20150529
  Serious: Yes (Hospitalization, Other)
  Sender: FDA-Public Use
  Company Number: GR-BAYER-2014-161597

PATIENT
  Age: 32 Year
  Sex: Male

DRUGS (7)
  1. ADALAT [Suspect]
     Active Substance: NIFEDIPINE
     Indication: ARTERIAL SPASM
     Dosage: 10 MG, BID
     Route: 048
     Dates: start: 20141015
  2. CIPROXIN [Concomitant]
     Active Substance: CIPROFLOXACIN
     Indication: PYREXIA
     Dosage: UNK
     Dates: start: 20141029
  3. ZINADOL [Concomitant]
     Active Substance: CEFUROXIME AXETIL
     Indication: INFECTION PROPHYLAXIS
     Dosage: 500 MG, BID
     Dates: start: 20141015
  4. XARELTO [Suspect]
     Active Substance: RIVAROXABAN
     Indication: THROMBOSIS PROPHYLAXIS
     Dosage: 20 MG, QD
     Route: 048
     Dates: start: 201310, end: 20141013
  5. XARELTO [Suspect]
     Active Substance: RIVAROXABAN
     Indication: EMBOLISM VENOUS
     Dosage: 20 MG, QD
     Route: 048
     Dates: start: 20141022, end: 20141027
  6. PLAVIX [Concomitant]
     Active Substance: CLOPIDOGREL BISULFATE
     Indication: THROMBOSIS PROPHYLAXIS
     Dosage: 75 MG, UNK
     Dates: start: 20141022, end: 20141027
  7. XEFO [Concomitant]
     Active Substance: LORNOXICAM
     Indication: ANALGESIC THERAPY
     Dosage: UNK
     Dates: start: 20141015

REACTIONS (4)
  - Product use issue [None]
  - Abdominal pain [None]
  - Product use issue [None]
  - Acute kidney injury [Recovered/Resolved]

NARRATIVE: CASE EVENT DATE: 201310
